FAERS Safety Report 4362834-1 (Version None)
Quarter: 2004Q2

REPORT INFORMATION
  Report Type: 
  Country: None (occurrence: None)
  Receive Date: 20040518
  Receipt Date: 20040506
  Transmission Date: 20050107
  Serious: Yes (Hospitalization)
  Sender: FDA-Public Use
  Company Number: HQWYE873207JUL03

PATIENT
  Age: 70 Year
  Sex: Male

DRUGS (9)
  1. CORDARONE [Suspect]
     Indication: ATRIAL FIBRILLATION
     Dosage: TOTAL DOSE OF 300MG OVER 2 DAYS
     Route: 042
     Dates: start: 20030408, end: 20030409
  2. CORDARONE [Suspect]
     Dates: start: 20040401
  3. NEXIUM [Concomitant]
  4. ZOCORD (SIMVASTATIN) [Concomitant]
  5. LANACRIST (DIGOXIN) [Concomitant]
  6. IMPUGAN (FUROSEMIDE) [Concomitant]
  7. SOTALOL HCL [Concomitant]
  8. TROMBYL (ACETYLSALICYLIC ACID) [Concomitant]
  9. FEM-MONO (ISOSORBIDE MONONITRATE) [Concomitant]

REACTIONS (2)
  - BACK PAIN [None]
  - PAIN IN EXTREMITY [None]
